FAERS Safety Report 17574455 (Version 1)
Quarter: 2020Q1

REPORT INFORMATION
  Report Type: Other
  Country: DK (occurrence: DK)
  Receive Date: 20200324
  Receipt Date: 20200324
  Transmission Date: 20200409
  Serious: Yes (Death)
  Sender: FDA-Public Use
  Company Number: DK-CELLTRION INC.-2020DK020792

PATIENT

DRUGS (8)
  1. CLOPIDOGREL [Concomitant]
     Active Substance: CLOPIDOGREL BISULFATE
     Indication: THROMBOSIS PROPHYLAXIS
     Dosage: 75 MG, DAILY
     Route: 048
     Dates: start: 20190727
  2. TRAMADOL. [Concomitant]
     Active Substance: TRAMADOL
     Indication: PAIN
     Dosage: 50 MG, AS NECESSARY
     Route: 048
     Dates: start: 20190828
  3. RITUXIMAB (UNKNOWN) [Suspect]
     Active Substance: RITUXIMAB
     Indication: GRANULOMATOSIS WITH POLYANGIITIS
     Dosage: 550 ML
     Dates: start: 20170512, end: 20190621
  4. CIPRAMIL [Concomitant]
     Indication: DEPRESSION
     Dosage: 30 MG, DAILY
     Route: 048
     Dates: start: 20190827
  5. CENTYL MED KALIUMKLORID [Concomitant]
     Active Substance: BENDROFLUMETHIAZIDE\POTASSIUM CHLORIDE
     Indication: HYPERTENSION
     Dosage: 1 DF, DAILY
     Route: 048
     Dates: start: 20170406
  6. RAMIPRIL ^HEXAL^ [Concomitant]
     Indication: PAIN
     Dosage: 50 MG/KG, AS NECESSARY
     Route: 048
     Dates: start: 20190828
  7. ADALAT [Concomitant]
     Active Substance: NIFEDIPINE
     Indication: HYPERTENSION
     Dosage: 60 MG, DAILY
     Route: 048
     Dates: start: 20140623
  8. PREDNISOLON ^DAK^ [Concomitant]
     Active Substance: PREDNISOLONE
     Indication: ADRENOCORTICAL STEROID THERAPY
     Dosage: 2.5 MG, DAILY
     Route: 048
     Dates: start: 20160404

REACTIONS (2)
  - Progressive multifocal leukoencephalopathy [Fatal]
  - General physical health deterioration [Fatal]

NARRATIVE: CASE EVENT DATE: 2019
